FAERS Safety Report 14488365 (Version 9)
Quarter: 2019Q1

REPORT INFORMATION
  Report Type: Spontaneous
  Country: GB (occurrence: GB)
  Receive Date: 20180205
  Receipt Date: 20190114
  Transmission Date: 20190417
  Serious: Yes (Other)
  Sender: FDA-Public Use
  Company Number: GB-MYLANLABS-2018M1006984

PATIENT
  Age: 17 Year
  Sex: Female

DRUGS (35)
  1. VINORELBINE [Suspect]
     Active Substance: VINORELBINE\VINORELBINE TARTRATE
     Indication: DESMOPLASTIC SMALL ROUND CELL TUMOUR
     Dosage: 1 IU, CYCLE 4 CYCLES, CYCLICAL
     Route: 065
  2. VINORELBINE [Suspect]
     Active Substance: VINORELBINE\VINORELBINE TARTRATE
     Dosage: UNK
  3. ACTINOMYCIN D [Suspect]
     Active Substance: DACTINOMYCIN
     Indication: DESMOPLASTIC SMALL ROUND CELL TUMOUR
     Dosage: UNK, 4 CYCLE
     Route: 042
  4. IRINOTECAN [Suspect]
     Active Substance: IRINOTECAN
     Indication: DESMOPLASTIC SMALL ROUND CELL TUMOUR
     Dosage: UNK
     Route: 065
  5. DACTINOMYCIN [Suspect]
     Active Substance: DACTINOMYCIN
     Indication: DESMOPLASTIC SMALL ROUND CELL TUMOUR
     Dosage: UNK, CYCLE (4 CYCLES)
  6. CYCLOPHOSPHAMIDE. [Suspect]
     Active Substance: CYCLOPHOSPHAMIDE
     Indication: DESMOPLASTIC SMALL ROUND CELL TUMOUR
     Dosage: UNK, 3 LINES OF CHEMOTHERAPY
     Route: 065
  7. IFOSFAMIDE. [Suspect]
     Active Substance: IFOSFAMIDE
     Indication: DESMOPLASTIC SMALL ROUND CELL TUMOUR
     Dosage: 1 IU, CYCLE,5 CYCLES
     Route: 065
  8. SEPTRIN [Suspect]
     Active Substance: SULFAMETHOXAZOLE\TRIMETHOPRIM
     Indication: PRODUCT USED FOR UNKNOWN INDICATION
     Dosage: 480 MG, BID  SATURDAY AND SUNDAY
     Route: 065
  9. TOPOTECAN [Suspect]
     Active Substance: TOPOTECAN HYDROCHLORIDE
     Indication: DESMOPLASTIC SMALL ROUND CELL TUMOUR
     Dosage: UNK 3 LINES OF CHEMOTHERAPY
     Route: 065
  10. DACTINOMYCIN [Suspect]
     Active Substance: DACTINOMYCIN
     Dosage: UNK
     Route: 042
  11. VINCRISTINE [Suspect]
     Active Substance: VINCRISTINE
     Indication: MALIGNANT NEOPLASM PROGRESSION
     Dosage: 1 IU, CYCLE
     Route: 042
  12. IFOSFAMIDE. [Suspect]
     Active Substance: IFOSFAMIDE
     Dosage: UNK,4 CYCLES
  13. DOXORUBICIN [Concomitant]
     Active Substance: DOXORUBICIN
     Indication: DESMOPLASTIC SMALL ROUND CELL TUMOUR
     Dosage: 1 IU, 4 CYCLES CYCLICAL
     Route: 065
  14. ONDANSETRON [Suspect]
     Active Substance: ONDANSETRON
     Indication: PRODUCT USED FOR UNKNOWN INDICATION
     Dosage: 8 MG, PRN
     Route: 065
  15. IRINOTECAN [Suspect]
     Active Substance: IRINOTECAN
     Indication: PRODUCT USED FOR UNKNOWN INDICATION
     Dosage: UNK 3 LINES OF CHEMOTHERAPY
     Route: 065
  16. TOPOTECAN [Suspect]
     Active Substance: TOPOTECAN HYDROCHLORIDE
     Indication: MALIGNANT NEOPLASM PROGRESSION
  17. VINCRISTINE [Suspect]
     Active Substance: VINCRISTINE
     Indication: DESMOPLASTIC SMALL ROUND CELL TUMOUR
     Dosage: 1 IU, CYCLE, 4 CYCLES, CYCLICAL
     Route: 042
  18. VINCRISTINE [Suspect]
     Active Substance: VINCRISTINE
     Dosage: 1 IU, CYCLE IVA 5 CYCLES ; CYCLICAL
     Route: 042
  19. TEMOZOLOMIDE. [Suspect]
     Active Substance: TEMOZOLOMIDE
     Indication: DESMOPLASTIC SMALL ROUND CELL TUMOUR
     Dosage: UNK 3 LINES OF CHEMOTHERAPY
     Route: 065
  20. DOCETAXEL. [Suspect]
     Active Substance: DOCETAXEL
     Indication: DESMOPLASTIC SMALL ROUND CELL TUMOUR
     Dosage: UNK 3 LINES OF CHEMOTHERAPY
  21. DACTINOMYCIN [Suspect]
     Active Substance: DACTINOMYCIN
     Dosage: UNK, CYCLEY (IVA 5 CYCLES; CYCLICAL)
  22. CYCLOPHOSPHAMIDE. [Suspect]
     Active Substance: CYCLOPHOSPHAMIDE
     Indication: MALIGNANT NEOPLASM PROGRESSION
     Dosage: UNK, 4 CYCLE MAINTENANCE THERAPY ;
     Route: 065
  23. CYCLIZINE [Suspect]
     Active Substance: CYCLIZINE
     Indication: PRODUCT USED FOR UNKNOWN INDICATION
     Dosage: 50 MG, PRN (AS REQUIRED)
  24. MELATONIN [Suspect]
     Active Substance: MELATONIN
     Indication: PRODUCT USED FOR UNKNOWN INDICATION
     Dosage: 6 MG, QD
  25. IFOSFAMIDE. [Suspect]
     Active Substance: IFOSFAMIDE
     Dosage: 1 IU, CYCLE 4 CYCLES  CYCLICAL
     Route: 065
  26. PAZOPANIB [Concomitant]
     Active Substance: PAZOPANIB
     Indication: PRODUCT USED FOR UNKNOWN INDICATION
     Dosage: UNK
  27. IRINOTECAN [Suspect]
     Active Substance: IRINOTECAN
     Indication: MALIGNANT NEOPLASM PROGRESSION
  28. TEMOZOLOMIDE. [Suspect]
     Active Substance: TEMOZOLOMIDE
     Indication: MALIGNANT NEOPLASM PROGRESSION
  29. DOCETAXEL. [Suspect]
     Active Substance: DOCETAXEL
     Indication: MALIGNANT NEOPLASM PROGRESSION
     Dosage: UNK
  30. VINCRISTINE [Suspect]
     Active Substance: VINCRISTINE
     Dosage: UNK
     Route: 065
  31. ACTINOMYCIN D [Suspect]
     Active Substance: DACTINOMYCIN
     Dosage: UNK UNK, IVA 5 CYCLE
     Route: 042
  32. GEMCITABINE [Suspect]
     Active Substance: GEMCITABINE\GEMCITABINE HYDROCHLORIDE
     Indication: DESMOPLASTIC SMALL ROUND CELL TUMOUR
     Dosage: UNK 3 LINES OF CHEMOTHERAPY
     Route: 065
  33. VINORELBINE [Suspect]
     Active Substance: VINORELBINE\VINORELBINE TARTRATE
     Dosage: UNK, CYCLE 4 CYCLES, MAINTENANCE THERAPY ; CYCLICAL
  34. VINCRISTINE [Suspect]
     Active Substance: VINCRISTINE
     Dosage: UNK,THREE LINES OF CHEMOTHERAPY
     Route: 042
  35. SEPTRIN [Suspect]
     Active Substance: SULFAMETHOXAZOLE\TRIMETHOPRIM
     Dosage: UNK
     Route: 065

REACTIONS (9)
  - Drug ineffective [Unknown]
  - Metastases to peritoneum [Unknown]
  - Desmoplastic small round cell tumour [Unknown]
  - Ascites [Recovering/Resolving]
  - Drug effect incomplete [Unknown]
  - Off label use [Unknown]
  - Malignant neoplasm progression [Unknown]
  - Metastases to lymph nodes [Unknown]
  - Metastases to liver [Unknown]

NARRATIVE: CASE EVENT DATE: 2017
